FAERS Safety Report 10678081 (Version 1)
Quarter: 2014Q4

REPORT INFORMATION
  Report Type: Spontaneous
  Country: GB (occurrence: None)
  Receive Date: 20141223
  Receipt Date: 20141223
  Transmission Date: 20150529
  Serious: Yes (Disabling)
  Sender: FDA-Public Use
  Company Number: GB-DEXPHARM-20141064

PATIENT
  Age: 21 Year
  Sex: Male

DRUGS (2)
  1. NASONEX [Concomitant]
     Active Substance: MOMETASONE FUROATE
  2. OMEPRAZOLE ACTIVE SUBSTANCES:OMEPRAZOLE [Suspect]
     Active Substance: OMEPRAZOLE
     Dates: start: 20141203

REACTIONS (3)
  - Headache [None]
  - Dizziness [None]
  - Asthenia [None]

NARRATIVE: CASE EVENT DATE: 20140312
